FAERS Safety Report 6154593-7 (Version None)
Quarter: 2009Q2

REPORT INFORMATION
  Report Type: 
  Country: None (occurrence: None)
  Receive Date: 20090414
  Receipt Date: 20090331
  Transmission Date: 20091009
  Serious: Yes (Death)
  Sender: FDA-Public Use
  Company Number: JP-ROCHE-625523

PATIENT
  Sex: Female

DRUGS (9)
  1. MYCOPHENOLATE MOFETIL [Suspect]
     Indication: GRAFT VERSUS HOST DISEASE
     Route: 048
     Dates: start: 20070812, end: 20071027
  2. PROGRAF [Concomitant]
     Dosage: NOTE: 0.5-2 MG
     Route: 048
     Dates: start: 20070612, end: 20071210
  3. PREDONINE [Concomitant]
     Dosage: NOTE: 10-40 MG
     Route: 048
     Dates: start: 20070622, end: 20080513
  4. GASTER D [Concomitant]
     Route: 048
     Dates: start: 20070220, end: 20080512
  5. URSO 250 [Concomitant]
     Dosage: NOTE: 300-600 MG
     Route: 048
     Dates: start: 20070515, end: 20080516
  6. ZOVIRAX [Concomitant]
     Dosage: FORM: ORAL FORMULATION (NOT OTHERWISE SPECIFIED)
     Route: 048
     Dates: start: 20070515, end: 20080312
  7. ONEALFA [Concomitant]
     Route: 048
     Dates: start: 20070712, end: 20080507
  8. ALESION [Concomitant]
     Route: 048
     Dates: start: 20070808, end: 20070816
  9. ITRIZOLE [Concomitant]
     Route: 048
     Dates: start: 20070810, end: 20080501

REACTIONS (3)
  - BLOOD ALKALINE PHOSPHATASE INCREASED [None]
  - BLOOD BILIRUBIN INCREASED [None]
  - DEATH [None]
